FAERS Safety Report 5743975-0 (Version None)
Quarter: 2008Q2

REPORT INFORMATION
  Report Type: 
  Country: None (occurrence: None)
  Receive Date: 20080520
  Receipt Date: 20080513
  Transmission Date: 20081010
  Serious: Yes (Hospitalization)
  Sender: FDA-Public Use
  Company Number: JP-ABBOTT-08P-087-0451750-00

PATIENT
  Age: 12 Year
  Sex: Female
  Weight: 39 kg

DRUGS (4)
  1. CLARITH TABLETS [Suspect]
     Indication: BRONCHITIS
     Route: 048
     Dates: start: 20080321, end: 20080322
  2. BROMHEXINE HYDROCHLORIDE [Concomitant]
     Indication: BRONCHITIS
     Route: 048
     Dates: start: 20080321, end: 20080327
  3. AMBROXOL [Concomitant]
     Indication: BRONCHITIS
     Route: 048
     Dates: start: 20080321, end: 20080327
  4. DEQUALINIUM CHLORIDE [Concomitant]
     Indication: BRONCHITIS
     Route: 048
     Dates: start: 20080321, end: 20080327

REACTIONS (2)
  - HYPERTHERMIA [None]
  - MUSCULOSKELETAL STIFFNESS [None]
